FAERS Safety Report 7538059-5 (Version None)
Quarter: 2011Q2

REPORT INFORMATION
  Report Type: 
  Country: None (occurrence: None)
  Receive Date: 20110609
  Receipt Date: 20110602
  Transmission Date: 20111010
  Serious: Yes (Other)
  Sender: FDA-Public Use
  Company Number: US-PFIZER INC-2011120169

PATIENT
  Sex: Female
  Weight: 73.5 kg

DRUGS (4)
  1. TENORETIC [Concomitant]
     Dosage: UNK
  2. POTASSIUM [Concomitant]
     Dosage: 10 MG, UNK
  3. ZANTAC [Concomitant]
     Dosage: UNK
  4. LIPITOR [Suspect]
     Indication: BLOOD CHOLESTEROL INCREASED
     Dosage: 10 MG, DAILY
     Route: 048
     Dates: start: 20110518

REACTIONS (1)
  - MELAENA [None]
